FAERS Safety Report 21701188 (Version 1)
Quarter: 2022Q4

REPORT INFORMATION
  Report Type: Spontaneous
  Country: US (occurrence: US)
  Receive Date: 20221208
  Receipt Date: 20221208
  Transmission Date: 20230113
  Serious: Yes (Other)
  Sender: FDA-Public Use
  Company Number: US-AMERICAN REGENT INC-2022003431

PATIENT
  Age: 35 Year
  Sex: Male

DRUGS (1)
  1. TESTOSTERONE CYPIONATE [Suspect]
     Active Substance: TESTOSTERONE CYPIONATE
     Indication: Hypogonadism male
     Dosage: UNK
     Route: 030

REACTIONS (7)
  - Intracranial pressure increased [Recovering/Resolving]
  - Blood testosterone increased [Recovered/Resolved]
  - Haemoglobin increased [Unknown]
  - Haematocrit increased [Unknown]
  - Hypothalamo-pituitary disorder [Unknown]
  - Off label use [Unknown]
  - Incorrect dose administered [Unknown]
